FAERS Safety Report 7293463-8 (Version None)
Quarter: 2011Q1

REPORT INFORMATION
  Report Type: 
  Country: None (occurrence: None)
  Receive Date: 20110215
  Receipt Date: 20110208
  Transmission Date: 20110831
  Serious: No
  Sender: FDA-Public Use
  Company Number: US-PFIZER INC-2011002186

PATIENT
  Sex: Female
  Weight: 99.8 kg

DRUGS (4)
  1. DILTIAZEM HYDROCHLORIDE [Concomitant]
     Indication: HYPERTENSION
     Dosage: 360 MG, 1X/DAY
     Route: 048
  2. TOPROL-XL [Concomitant]
     Indication: HYPERTENSION
     Dosage: 50 MG, 1X/DAY
     Route: 048
  3. NEXIUM [Concomitant]
     Indication: DYSPEPSIA
     Dosage: 40 MG, 1X/DAY
     Route: 048
  4. PREMPRO [Suspect]
     Indication: HOT FLUSH
     Dosage: 1.5 MG, 1X/DAY
     Route: 048
     Dates: start: 20090901

REACTIONS (2)
  - FEELING ABNORMAL [None]
  - DRUG INEFFECTIVE [None]
